FAERS Safety Report 15097851 (Version 1)
Quarter: 2018Q3

REPORT INFORMATION
  Report Type: Spontaneous
  Country: US (occurrence: US)
  Receive Date: 20180702
  Receipt Date: 20180702
  Transmission Date: 20181010
  Serious: No
  Sender: FDA-Public Use
  Company Number: US-PFM-2018-03434

PATIENT

DRUGS (5)
  1. HEMANGEOL [Suspect]
     Active Substance: PROPRANOLOL HYDROCHLORIDE
     Indication: INFANTILE HAEMANGIOMA
     Dosage: 1.7 ML, BID (2/DAY) WITH FEEDINGS AS INSTRUCTED
     Route: 048
     Dates: start: 20170616
  2. HEMANGEOL [Suspect]
     Active Substance: PROPRANOLOL HYDROCHLORIDE
     Dosage: 2 ML, BID (2/DAY) WITH FEEDINGS AS INSTRUCTED
     Route: 048
     Dates: start: 20170713
  3. HEMANGEOL [Suspect]
     Active Substance: PROPRANOLOL HYDROCHLORIDE
     Dosage: 2.3 ML, BID (2/DAY) WITH FEEDINGS AS INSTRUCTED.
     Route: 048
     Dates: start: 20171011
  4. HEMANGEOL [Suspect]
     Active Substance: PROPRANOLOL HYDROCHLORIDE
     Dosage: 2.5 ML, BID (2/DAY) WITH FEEDINGS AS INSTRUCTED.
     Route: 048
     Dates: start: 20171204
  5. HEMANGEOL [Suspect]
     Active Substance: PROPRANOLOL HYDROCHLORIDE
     Dosage: 2.1 ML, BID (2/DAY) WITH FEEDINGS AS INSTRUCTED.
     Route: 048
     Dates: start: 20170830

REACTIONS (3)
  - Middle insomnia [Recovering/Resolving]
  - Cough [Recovered/Resolved]
  - Upper respiratory tract infection [Recovered/Resolved]
